FAERS Safety Report 8393966-9 (Version None)
Quarter: 2012Q2

REPORT INFORMATION
  Report Type: 
  Country: None (occurrence: None)
  Receive Date: 20120517
  Receipt Date: 20120501
  Transmission Date: 20120825
  Serious: Yes (Congenital Anomaly)
  Sender: FDA-Public Use
  Company Number: B0800650A

PATIENT
  Sex: 0

DRUGS (3)
  1. PHENYTOIN [Suspect]
     Indication: EPILEPSY
     Dosage: 500 MG/TRANSPLACENTARY
     Route: 064
  2. VALPROIC ACID [Suspect]
     Indication: EPILEPSY
     Dosage: 3000 MG / TRANSPLACENTARY
     Route: 064
  3. LAMOTRIGINE [Suspect]
     Indication: EPILEPSY
     Dosage: 300 MG/ TRANSPLACENTARY

REACTIONS (5)
  - MUSCLE CONTRACTURE [None]
  - DEXTROCARDIA [None]
  - MATERNAL DRUGS AFFECTING FOETUS [None]
  - SYNOSTOSIS [None]
  - TALIPES [None]
